FAERS Safety Report 23137373 (Version 1)
Quarter: 2023Q4

REPORT INFORMATION
  Report Type: Spontaneous
  Country: CN (occurrence: CN)
  Receive Date: 20231102
  Receipt Date: 20231102
  Transmission Date: 20240110
  Serious: Yes (Hospitalization)
  Sender: FDA-Public Use
  Company Number: CN-AMGEN-CHNSP2023193082

PATIENT
  Age: 87 Year
  Sex: Male
  Weight: 57 kg

DRUGS (6)
  1. XGEVA [Suspect]
     Active Substance: DENOSUMAB
     Indication: Bone cancer
     Dosage: 120 MILLIGRAM, Q4WK
     Route: 058
     Dates: start: 20230117
  2. ABIRATERONE [Concomitant]
     Active Substance: ABIRATERONE
  3. PREDNISONE [Concomitant]
     Active Substance: PREDNISONE
  4. CALCIUM [Concomitant]
     Active Substance: CALCIUM
     Indication: Hypocalcaemia
  5. LEVOFLOXACIN [Concomitant]
     Active Substance: LEVOFLOXACIN
     Indication: Prophylaxis
     Route: 042
  6. METRONIDAZOLE [Concomitant]
     Active Substance: METRONIDAZOLE
     Indication: Prophylaxis
     Route: 042

REACTIONS (1)
  - Gingival pain [Recovering/Resolving]

NARRATIVE: CASE EVENT DATE: 20231017
